FAERS Safety Report 9257416 (Version 1)
Quarter: 2013Q1

REPORT INFORMATION
  Report Type: Spontaneous
  Country: US (occurrence: None)
  Receive Date: 20121212
  Receipt Date: 20121212
  Transmission Date: 20140127
  Serious: No
  Sender: FDA-Public Use
  Company Number: 1208USA002985

PATIENT
  Age: 46 Year
  Sex: Female
  Weight: 71.7 kg

DRUGS (2)
  1. PEGINTRON [Suspect]
     Route: 058
     Dates: start: 20120726, end: 20120920
  2. VICTRELIS [Suspect]

REACTIONS (2)
  - Herpes zoster [None]
  - Accidental exposure to product [None]
